FAERS Safety Report 23413860 (Version 1)
Quarter: 2024Q1

REPORT INFORMATION
  Report Type: Spontaneous
  Country: US (occurrence: US)
  Receive Date: 20240117
  Receipt Date: 20240117
  Transmission Date: 20240410
  Serious: No
  Sender: FDA-Public Use
  Company Number: US-NOVOPROD-1121845

PATIENT
  Age: 74 Year
  Sex: Male

DRUGS (2)
  1. OZEMPIC [Suspect]
     Active Substance: SEMAGLUTIDE
     Indication: Product used for unknown indication
     Dosage: 0.25 MG WEEKLY THEN MOVED UP TO THE 0.5 MG WEEKLY
     Route: 058
     Dates: start: 20230807
  2. OZEMPIC [Suspect]
     Active Substance: SEMAGLUTIDE
     Dosage: 0.5 MG WEEKLY
     Route: 058

REACTIONS (7)
  - Sputum discoloured [Recovered/Resolved]
  - Faeces discoloured [Unknown]
  - Haemorrhoids [Recovered/Resolved]
  - Faeces soft [Not Recovered/Not Resolved]
  - Constipation [Recovered/Resolved]
  - Diarrhoea [Not Recovered/Not Resolved]
  - Gastrooesophageal reflux disease [Recovered/Resolved]

NARRATIVE: CASE EVENT DATE: 20230807
